FAERS Safety Report 5559546-5 (Version None)
Quarter: 2007Q4

REPORT INFORMATION
  Report Type: 
  Country: None (occurrence: None)
  Receive Date: 20071214
  Receipt Date: 20071005
  Transmission Date: 20080405
  Serious: No
  Sender: FDA-Public Use
  Company Number: US-ABBOTT-07P-163-0419972-00

PATIENT
  Sex: Female
  Weight: 55.842 kg

DRUGS (7)
  1. HUMIRA [Suspect]
     Indication: PSORIATIC ARTHROPATHY
     Route: 058
     Dates: start: 20070901
  2. METHOTREXATE [Concomitant]
     Indication: DRUG USE FOR UNKNOWN INDICATION
  3. PREGABALIN [Concomitant]
     Indication: DRUG USE FOR UNKNOWN INDICATION
  4. CELECOXIB [Concomitant]
     Indication: DRUG USE FOR UNKNOWN INDICATION
  5. HORMONE REPLACEMENT [Concomitant]
     Indication: DRUG USE FOR UNKNOWN INDICATION
  6. BUPROPION HCL [Concomitant]
     Indication: DRUG USE FOR UNKNOWN INDICATION
  7. ESCITALOPRAM OXALATE [Concomitant]
     Indication: DRUG USE FOR UNKNOWN INDICATION

REACTIONS (4)
  - ABDOMINAL DISTENSION [None]
  - ANOREXIA [None]
  - FATIGUE [None]
  - NAUSEA [None]
